FAERS Safety Report 9707751 (Version 1)
Quarter: 2013Q4

REPORT INFORMATION
  Report Type: Spontaneous
  Country: GB (occurrence: GB)
  Receive Date: 20131125
  Receipt Date: 20131125
  Transmission Date: 20140711
  Serious: Yes (Hospitalization)
  Sender: FDA-Public Use
  Company Number: GB-PFIZER INC-2013331195

PATIENT
  Age: 14 Year
  Sex: Female

DRUGS (5)
  1. IBUPROFEN [Suspect]
     Dosage: UNK
  2. PARACETAMOL [Suspect]
     Dosage: UNK
  3. AZATHIOPRINE [Suspect]
     Indication: IMMUNOSUPPRESSANT DRUG THERAPY
     Dosage: 1500 MG, UNK
     Dates: start: 2010
  4. HYDOXYCHLOROQUINE [Concomitant]
  5. RANITIDINE [Concomitant]

REACTIONS (2)
  - Suicide attempt [Unknown]
  - Intentional overdose [Unknown]
